FAERS Safety Report 6856777-9 (Version None)
Quarter: 2010Q3

REPORT INFORMATION
  Report Type: 
  Country: None (occurrence: None)
  Receive Date: 20100714
  Receipt Date: 20100706
  Transmission Date: 20110219
  Serious: Yes (Hospitalization)
  Sender: FDA-Public Use
  Company Number: RB-12471-2010

PATIENT
  Age: 43 Year
  Sex: Male

DRUGS (3)
  1. SUBOXONE [Suspect]
     Indication: DRUG DEPENDENCE
     Dosage: 4 MG QID, SUBLINGUAL
     Route: 060
     Dates: start: 20100703, end: 20100703
  2. PHENOBARBITAL TAB [Suspect]
     Indication: DRUG DETOXIFICATION
     Dosage: 60 MG, QID, ORAL
     Route: 048
     Dates: start: 20100703, end: 20100703
  3. ALCOHOL [Suspect]
     Indication: PRODUCT USED FOR UNKNOWN INDICATION

REACTIONS (2)
  - BRAIN DEATH [None]
  - UNRESPONSIVE TO STIMULI [None]
